FAERS Safety Report 24296401 (Version 1)
Quarter: 2024Q3

REPORT INFORMATION
  Report Type: Spontaneous
  Country: US (occurrence: US)
  Receive Date: 20240909
  Receipt Date: 20240909
  Transmission Date: 20241017
  Serious: No
  Sender: ELI LILLY AND CO
  Company Number: US-ELI_LILLY_AND_COMPANY-US202409003776

PATIENT
  Age: 40 Year
  Sex: Female

DRUGS (4)
  1. ZEPBOUND [Suspect]
     Active Substance: TIRZEPATIDE
     Indication: Weight control
     Dosage: 12.5 MG, OTHER (6.25MG, WEEKLY)
     Route: 058
     Dates: start: 20240721
  2. ZEPBOUND [Suspect]
     Active Substance: TIRZEPATIDE
     Indication: Weight control
     Dosage: 12.5 MG, OTHER (6.25MG, WEEKLY)
     Route: 058
     Dates: start: 20240721
  3. ZEPBOUND [Suspect]
     Active Substance: TIRZEPATIDE
     Indication: Weight control
     Dosage: 12.5 MG, OTHER (6.25MG, WEEKLY)
     Route: 058
     Dates: start: 20240721
  4. ZEPBOUND [Suspect]
     Active Substance: TIRZEPATIDE
     Indication: Weight control
     Dosage: 12.5 MG, OTHER (6.25MG, WEEKLY)
     Route: 058
     Dates: start: 20240721

REACTIONS (2)
  - Maternal exposure during pregnancy [Unknown]
  - Wrong technique in product usage process [Unknown]

NARRATIVE: CASE EVENT DATE: 20240721
